FAERS Safety Report 8604178-5 (Version None)
Quarter: 2012Q3

REPORT INFORMATION
  Report Type: 
  Country: None (occurrence: None)
  Receive Date: 20120820
  Receipt Date: 20120814
  Transmission Date: 20120928
  Serious: No
  Sender: FDA-Public Use
  Company Number: US-PFIZER INC-2012198846

PATIENT
  Age: 32 Year
  Sex: Female

DRUGS (2)
  1. HYDROCODONE [Concomitant]
     Dosage: UNK
  2. ADVIL [Suspect]
     Indication: TOOTHACHE
     Dosage: 400 MG (TWO TABLETS OF 200MG), 1X/DAY
     Route: 048
     Dates: start: 20120813, end: 20120813

REACTIONS (2)
  - PALPITATIONS [None]
  - FEELING ABNORMAL [None]
